FAERS Safety Report 22591112 (Version 2)
Quarter: 2023Q2

REPORT INFORMATION
  Report Type: Spontaneous
  Country: IT (occurrence: IT)
  Receive Date: 20230612
  Receipt Date: 20230615
  Transmission Date: 20230721
  Serious: Yes (Other)
  Sender: FDA-Public Use
  Company Number: IT-MLMSERVICE-20230605-4317595-1

PATIENT
  Age: 6 Year
  Sex: Female

DRUGS (6)
  1. VINCRISTINE SULFATE [Suspect]
     Active Substance: VINCRISTINE SULFATE
     Indication: Nephroblastoma
     Dosage: UNK, CYCLIC
     Dates: start: 2020, end: 2020
  2. CARBOPLATIN [Suspect]
     Active Substance: CARBOPLATIN
     Indication: Nephroblastoma
     Dosage: UNK, CYCLIC
     Dates: start: 2020, end: 2020
  3. DOXORUBICIN HYDROCHLORIDE [Suspect]
     Active Substance: DOXORUBICIN HYDROCHLORIDE
     Indication: Nephroblastoma
     Dosage: UNK, CYCLIC
     Dates: start: 2020, end: 2020
  4. ETOPOSIDE [Suspect]
     Active Substance: ETOPOSIDE
     Indication: Nephroblastoma
     Dosage: UNK, CYCLIC
     Dates: start: 2020, end: 2020
  5. CYCLOPHOSPHAMIDE [Suspect]
     Active Substance: CYCLOPHOSPHAMIDE
     Indication: Nephroblastoma
     Dosage: UNK, CYCLIC
     Dates: start: 2020, end: 2020
  6. ACTINOMYCIN D [Suspect]
     Active Substance: DACTINOMYCIN
     Indication: Nephroblastoma
     Dosage: UNK, CYCLIC
     Dates: start: 2020, end: 2020

REACTIONS (1)
  - Pulmonary cavitation [Unknown]

NARRATIVE: CASE EVENT DATE: 20220101
